FAERS Safety Report 7258298-0 (Version None)
Quarter: 2011Q1

REPORT INFORMATION
  Report Type: 
  Country: None (occurrence: None)
  Receive Date: 20110129
  Receipt Date: 20100715
  Transmission Date: 20110831
  Serious: No
  Sender: FDA-Public Use
  Company Number: US-ABBOTT-10P-163-0657982-00

PATIENT
  Age: 53 Year
  Sex: Female

DRUGS (5)
  1. PROTONIX [Concomitant]
     Indication: ULCER
  2. HUMIRA [Suspect]
     Indication: PSORIATIC ARTHROPATHY
     Dates: start: 20100415
  3. LEVOTHYROXINE SODIUM [Concomitant]
     Indication: HYPOTHYROIDISM
  4. PROTONIX [Concomitant]
     Indication: GASTROOESOPHAGEAL REFLUX DISEASE
  5. CELEBREX [Concomitant]
     Indication: ARTHRITIS

REACTIONS (2)
  - HYPOAESTHESIA [None]
  - DRY MOUTH [None]
